FAERS Safety Report 4551800-9 (Version None)
Quarter: 2005Q1

REPORT INFORMATION
  Report Type: 
  Country: None (occurrence: None)
  Receive Date: 20050111
  Receipt Date: 20050103
  Transmission Date: 20050727
  Serious: Yes (Life-Threatening)
  Sender: FDA-Public Use
  Company Number: 2004206087FR

PATIENT
  Age: 52 Year
  Sex: Male

DRUGS (5)
  1. PROSTIN VR PEDIATRIC [Suspect]
     Indication: ILL-DEFINED DISORDER
     Dosage: 0.5MG/50ML, INTRAVENOUS
     Route: 042
     Dates: start: 20030821, end: 20030822
  2. ACETYLCYSTEINE [Suspect]
     Indication: ILL-DEFINED DISORDER
     Dosage: 5 GM, INTRAVENOUS
     Route: 042
     Dates: start: 20030821, end: 20030822
  3. CLAVENTIN                   (CLAVULANTE POTASSIUM, TICARCILLIN DISODIU [Concomitant]
  4. TACROLIMUS                               (TACROLIMUS) [Concomitant]
  5. METHYLPREDNISOLONE SODIUM SUCCINATE [Concomitant]

REACTIONS (10)
  - ANURIA [None]
  - CARDIAC FAILURE [None]
  - CARDIOMYOPATHY [None]
  - DIALYSIS [None]
  - MYOCARDITIS [None]
  - OEDEMA DUE TO CARDIAC DISEASE [None]
  - RESPIRATORY FAILURE [None]
  - SUPRAVENTRICULAR TACHYCARDIA [None]
  - TROPONIN INCREASED [None]
  - VENTRICULAR HYPOKINESIA [None]
